FAERS Safety Report 9537539 (Version 3)
Quarter: 2013Q4

REPORT INFORMATION
  Report Type: Report from Study
  Country: US (occurrence: US)
  Receive Date: 20130919
  Receipt Date: 20131219
  Transmission Date: 20140711
  Serious: Yes (Hospitalization)
  Sender: FDA-Public Use
  Company Number: US-ABBVIE-13P-163-1145920-00

PATIENT
  Age: 52 Year
  Sex: Male

DRUGS (9)
  1. HUMIRA [Suspect]
     Indication: HIDRADENITIS
     Route: 058
     Dates: start: 20130104, end: 201306
  2. HUMIRA [Suspect]
     Route: 058
     Dates: start: 201306
  3. UNKNOWN ANTIDEPRESSANT DRUGS [Suspect]
     Indication: DEPRESSION
     Dates: end: 201308
  4. UNKNOWN ANTI-ANXIETY DRUGS [Suspect]
     Indication: ANXIETY
     Dates: end: 201308
  5. GABAPENTIN [Suspect]
     Indication: PRODUCT USED FOR UNKNOWN INDICATION
  6. VENLAFAXINE [Suspect]
     Indication: PRODUCT USED FOR UNKNOWN INDICATION
  7. VENLAFAXINE [Suspect]
     Indication: PRODUCT USED FOR UNKNOWN INDICATION
  8. DAPSONE [Concomitant]
     Indication: HIDRADENITIS
  9. METOPROLOL [Concomitant]
     Indication: HEART INJURY
     Dates: start: 2005

REACTIONS (9)
  - Dizziness [Recovered/Resolved]
  - Fall [Recovered/Resolved]
  - Loss of consciousness [Recovered/Resolved]
  - Skin discolouration [Recovered/Resolved]
  - Convulsion [Recovered/Resolved]
  - Pyrexia [Recovered/Resolved]
  - Pneumonia [Recovered/Resolved]
  - Weight fluctuation [Not Recovered/Not Resolved]
  - Pain [Unknown]
